FAERS Safety Report 17246988 (Version 1)
Quarter: 2020Q1

REPORT INFORMATION
  Report Type: Spontaneous
  Country: US (occurrence: US)
  Receive Date: 20200107
  Receipt Date: 20200107
  Transmission Date: 20200409
  Serious: No
  Sender: FDA-Public Use
  Company Number: None

PATIENT
  Age: 45 Year
  Sex: Male
  Weight: 72 kg

DRUGS (1)
  1. HYDROMET [Suspect]
     Active Substance: HOMATROPINE METHYLBROMIDE\HYDROCODONE BITARTRATE
     Indication: COUGH
     Dosage: ?          QUANTITY:5 ML;?
     Route: 048
     Dates: start: 20200107, end: 20200107

REACTIONS (6)
  - Vomiting [None]
  - Somnolence [None]
  - Hypotension [None]
  - Dizziness [None]
  - Dry mouth [None]
  - Fatigue [None]

NARRATIVE: CASE EVENT DATE: 20200107
